FAERS Safety Report 25501717 (Version 1)
Quarter: 2025Q3

REPORT INFORMATION
  Report Type: Spontaneous
  Country: EU (occurrence: EU)
  Receive Date: 20250701
  Receipt Date: 20250701
  Transmission Date: 20251020
  Serious: Yes (Hospitalization, Other)
  Sender: CELLTRION
  Company Number: EU-AMGEN-POLSP2025027564

PATIENT

DRUGS (1)
  1. ADALIMUMAB [Suspect]
     Active Substance: ADALIMUMAB
     Indication: Juvenile idiopathic arthritis
     Route: 065

REACTIONS (4)
  - Arthritis reactive [Recovering/Resolving]
  - Diarrhoea [Unknown]
  - Purulent discharge [Unknown]
  - Infection [Unknown]

NARRATIVE: CASE EVENT DATE: 20230101
